FAERS Safety Report 12768708 (Version 1)
Quarter: 2016Q3

REPORT INFORMATION
  Report Type: Spontaneous
  Country: IT (occurrence: IT)
  Receive Date: 20160921
  Receipt Date: 20160921
  Transmission Date: 20161109
  Serious: Yes (Other)
  Sender: FDA-Public Use
  Company Number: IT-JNJFOC-20160919017

PATIENT
  Age: 57 Year
  Sex: Female
  Weight: 44 kg

DRUGS (2)
  1. YONDELIS [Suspect]
     Active Substance: TRABECTEDIN
     Indication: PRODUCT USED FOR UNKNOWN INDICATION
     Dosage: L01CX01??1 MG POWDER FOR CONCENTRATE FOR SOLUTION INFUSION
     Route: 042
     Dates: start: 20150915
  2. YONDELIS [Suspect]
     Active Substance: TRABECTEDIN
     Indication: PRODUCT USED FOR UNKNOWN INDICATION
     Dosage: 025 MG POWDER FOR CONCENTRATE FOR SOLUTION INFUSION
     Route: 042
     Dates: start: 20150915

REACTIONS (2)
  - Neutropenia [Recovering/Resolving]
  - Leukopenia [Recovering/Resolving]

NARRATIVE: CASE EVENT DATE: 20160905
